FAERS Safety Report 9540208 (Version 2)
Quarter: 2013Q4

REPORT INFORMATION
  Report Type: Spontaneous
  Country: US (occurrence: US)
  Receive Date: 20130920
  Receipt Date: 20131003
  Transmission Date: 20140711
  Serious: Yes (Hospitalization, Other)
  Sender: FDA-Public Use
  Company Number: US-BRISTOL-MYERS SQUIBB COMPANY-19404730

PATIENT
  Age: 8 Decade
  Sex: Male

DRUGS (2)
  1. ELIQUIS [Suspect]
     Indication: ATRIAL FIBRILLATION
     Route: 048
  2. ELIQUIS [Suspect]
     Indication: TRANSIENT ISCHAEMIC ATTACK
     Route: 048

REACTIONS (1)
  - Transient ischaemic attack [Unknown]
